FAERS Safety Report 4924741-2 (Version None)
Quarter: 2006Q1

REPORT INFORMATION
  Report Type: 
  Country: None (occurrence: None)
  Receive Date: 20060227
  Receipt Date: 20060209
  Transmission Date: 20060701
  Serious: Yes (Disabling)
  Sender: FDA-Public Use
  Company Number: US-MERCK-0602USA02428

PATIENT
  Age: 51 Year
  Sex: Female
  Weight: 53 kg

DRUGS (5)
  1. FOSAMAX [Suspect]
     Indication: OSTEOPOROSIS
     Route: 048
     Dates: start: 20040514
  2. CALCIUM (UNSPECIFIED) [Concomitant]
     Indication: OSTEOPENIA
     Route: 065
  3. VITAMIN D (UNSPECIFIED) [Concomitant]
     Indication: OSTEOPENIA
     Route: 048
  4. PREMPRO [Concomitant]
     Route: 065
     Dates: start: 20040402, end: 20041222
  5. PREMPRO [Concomitant]
     Route: 065
     Dates: start: 20041222

REACTIONS (2)
  - RIB FRACTURE [None]
  - THORACIC VERTEBRAL FRACTURE [None]
